FAERS Safety Report 25814024 (Version 1)
Quarter: 2025Q3

REPORT INFORMATION
  Report Type: Spontaneous
  Country: KR (occurrence: KR)
  Receive Date: 20250917
  Receipt Date: 20250917
  Transmission Date: 20251020
  Serious: Yes (Hospitalization, Other)
  Sender: Unknown Manufacturer
  Company Number: KR-CORZA MEDICAL GMBH-2025-KR-002325

PATIENT

DRUGS (1)
  1. TACHOSIL [Suspect]
     Active Substance: FIBRINOGEN HUMAN\HUMAN THROMBIN
     Indication: Cranial nerve decompression
     Route: 065

REACTIONS (4)
  - Cerebrospinal fluid leakage [Unknown]
  - Rhinorrhoea [Unknown]
  - Conductive deafness [Unknown]
  - Off label use [Unknown]
